FAERS Safety Report 23099173 (Version 1)
Quarter: 2023Q4

REPORT INFORMATION
  Report Type: Spontaneous
  Country: CZ (occurrence: CZ)
  Receive Date: 20231024
  Receipt Date: 20231024
  Transmission Date: 20240110
  Serious: Yes (Hospitalization, Other)
  Sender: FDA-Public Use
  Company Number: CZ-ABBVIE-19K-217-2795315-00

PATIENT
  Age: 4 Year
  Sex: Male
  Weight: 29 kg

DRUGS (7)
  1. METHOTREXATE [Suspect]
     Active Substance: METHOTREXATE
     Indication: Iridocyclitis
     Route: 058
     Dates: start: 201808, end: 20190419
  2. HUMIRA [Concomitant]
     Active Substance: ADALIMUMAB
     Indication: Juvenile idiopathic arthritis
     Route: 058
     Dates: start: 201611
  3. HUMIRA [Concomitant]
     Active Substance: ADALIMUMAB
     Indication: Juvenile idiopathic arthritis
     Route: 065
     Dates: start: 20190318, end: 20190421
  4. HUMIRA [Concomitant]
     Active Substance: ADALIMUMAB
     Indication: Juvenile idiopathic arthritis
     Route: 058
     Dates: start: 20180201
  5. HUMIRA [Concomitant]
     Active Substance: ADALIMUMAB
     Indication: Juvenile idiopathic arthritis
     Route: 058
     Dates: start: 20180503, end: 20190317
  6. FOLIC ACID [Concomitant]
     Active Substance: FOLIC ACID
     Indication: Drug therapy
     Route: 048
     Dates: start: 201608
  7. METHOTREXATE [Concomitant]
     Active Substance: METHOTREXATE
     Indication: Iridocyclitis
     Route: 058
     Dates: start: 20160801

REACTIONS (15)
  - Demyelination [Recovered/Resolved]
  - Uveitis [Unknown]
  - Dysarthria [Recovered/Resolved]
  - Immunosuppression [Recovering/Resolving]
  - Somnolence [Recovered/Resolved]
  - Inflammation [Not Recovered/Not Resolved]
  - Monoparesis [Recovered/Resolved]
  - Epstein-Barr virus infection [Recovering/Resolving]
  - Central nervous system lesion [Recovered/Resolved]
  - Hemiplegia [Recovered/Resolved]
  - Motor dysfunction [Recovered/Resolved]
  - Agitation [Recovered/Resolved]
  - Product use in unapproved indication [Unknown]
  - Altered state of consciousness [Recovered/Resolved]
  - Sarcoidosis [Unknown]

NARRATIVE: CASE EVENT DATE: 20190424
